FAERS Safety Report 8543601-1 (Version None)
Quarter: 2012Q3

REPORT INFORMATION
  Report Type: 
  Country: None (occurrence: None)
  Receive Date: 20120717
  Receipt Date: 20120703
  Transmission Date: 20120928
  Serious: Yes (Hospitalization, Disabling)
  Sender: FDA-Public Use
  Company Number: NGX_01076_2012

PATIENT
  Sex: Female
  Weight: 70 kg

DRUGS (4)
  1. KETOPROFEN [Concomitant]
  2. QUTENZA (CAPSAICIN) PATCH 179 MG [Suspect]
     Indication: NEURALGIA
     Dosage: 1 DF, DF [PATCH AT THE RIGHT ANKLE] TOPICAL
     Route: 061
     Dates: start: 20120316, end: 20120316
  3. ACUPAN [Concomitant]
  4. MOPRAL /OO661201/ [Concomitant]

REACTIONS (6)
  - PAIN [None]
  - DISEASE RECURRENCE [None]
  - DRUG HYPERSENSITIVITY [None]
  - DRUG INTOLERANCE [None]
  - COMPLEX REGIONAL PAIN SYNDROME [None]
  - BURNING SENSATION [None]
